FAERS Safety Report 18910657 (Version 1)
Quarter: 2021Q1

REPORT INFORMATION
  Report Type: Spontaneous
  Country: US (occurrence: US)
  Receive Date: 20210218
  Receipt Date: 20210218
  Transmission Date: 20210420
  Serious: Yes (Hospitalization, Other)
  Sender: FDA-Public Use
  Company Number: US-SUNOVION-2021SUN000439

PATIENT
  Age: 64 Year
  Sex: Male

DRUGS (4)
  1. KYNMOBI [Suspect]
     Active Substance: APOMORPHINE HYDROCHLORIDE
     Indication: PARKINSON^S DISEASE
     Dosage: UNK, 2 FILMS OF 25MG= 50MG OF KYNMOBI ON TOP OF HIS TONGUE OR 1 FILM OF 25 MG
     Route: 060
  2. ROPINIROLE. [Concomitant]
     Active Substance: ROPINIROLE
     Indication: PARKINSON^S DISEASE
     Dosage: 0.5 MG, 4 TIMES A DAY
  3. RYTARY [Concomitant]
     Active Substance: CARBIDOPA\LEVODOPA
     Indication: PARKINSON^S DISEASE
     Dosage: UNK
  4. KYNMOBI [Suspect]
     Active Substance: APOMORPHINE HYDROCHLORIDE
     Dosage: UNK, TITRATION WITH KYNMOBI
     Route: 060

REACTIONS (3)
  - Therapy cessation [Unknown]
  - Angioedema [Recovered/Resolved]
  - Incorrect route of product administration [Unknown]
